FAERS Safety Report 19087158 (Version 1)
Quarter: 2021Q2

REPORT INFORMATION
  Report Type: Spontaneous
  Country: US (occurrence: US)
  Receive Date: 20210402
  Receipt Date: 20210402
  Transmission Date: 20210717
  Serious: No
  Sender: FDA-Public Use
  Company Number: US-AMNEAL PHARMACEUTICALS-2020-AMRX-04138

PATIENT
  Age: 7 Month
  Sex: Male
  Weight: 7 kg

DRUGS (4)
  1. VIGABATRIN. [Suspect]
     Active Substance: VIGABATRIN
     Dosage: 450 MILLIGRAM (9ML), 2 /DAY
     Route: 048
     Dates: start: 2020, end: 20201222
  2. VIGABATRIN. [Suspect]
     Active Substance: VIGABATRIN
     Dosage: UNK
     Route: 048
     Dates: start: 20201224
  3. VIGABATRIN. [Suspect]
     Active Substance: VIGABATRIN
     Indication: INFANTILE SPASMS
     Dosage: 125 MILLIGRAM, 2 /DAY
     Route: 048
     Dates: start: 202011, end: 2020
  4. VIGABATRIN. [Suspect]
     Active Substance: VIGABATRIN
     Dosage: 250 MILLIGRAM (5ML), 2 /DAY
     Route: 048
     Dates: start: 2020, end: 2020

REACTIONS (5)
  - Irritability [Unknown]
  - Crying [Unknown]
  - Withdrawal syndrome [Unknown]
  - Product dose omission issue [Unknown]
  - Hyperhidrosis [Unknown]

NARRATIVE: CASE EVENT DATE: 20201222
